FAERS Safety Report 5909019-2 (Version None)
Quarter: 2008Q4

REPORT INFORMATION
  Report Type: 
  Country: None (occurrence: None)
  Receive Date: 20081006
  Receipt Date: 20080924
  Transmission Date: 20090506
  Serious: Yes (Hospitalization)
  Sender: FDA-Public Use
  Company Number: CN-ROCHE-587854

PATIENT
  Age: 35 Year
  Sex: Male

DRUGS (1)
  1. PEGASYS [Suspect]
     Indication: HEPATITIS C
     Route: 058
     Dates: start: 20061201, end: 20070501

REACTIONS (6)
  - ALANINE AMINOTRANSFERASE INCREASED [None]
  - ASCITES [None]
  - BLOOD ALBUMIN DECREASED [None]
  - HEPATIC ENCEPHALOPATHY [None]
  - HEPATITIS C RNA POSITIVE [None]
  - VARICES OESOPHAGEAL [None]
